FAERS Safety Report 6417768-5 (Version None)
Quarter: 2009Q4

REPORT INFORMATION
  Report Type: 
  Country: None (occurrence: None)
  Receive Date: 20091028
  Receipt Date: 20091020
  Transmission Date: 20100525
  Serious: Yes (Life-Threatening)
  Sender: FDA-Public Use
  Company Number: SK-BAXTER-2009BH016279

PATIENT
  Age: 63 Year
  Sex: Male

DRUGS (5)
  1. GAMMAGARD LIQUID [Suspect]
     Indication: HYPOGAMMAGLOBULINAEMIA
     Route: 065
     Dates: start: 20091013, end: 20091013
  2. ATORVASTATIN [Concomitant]
  3. TRANDOLAPRIL [Concomitant]
  4. BISOPROLOL [Concomitant]
  5. HYDROCORTISONE [Concomitant]
     Dates: start: 20091001, end: 20091001

REACTIONS (2)
  - ANAPHYLACTIC REACTION [None]
  - BLOOD PRESSURE DECREASED [None]
